FAERS Safety Report 11870269 (Version 1)
Quarter: 2015Q4

REPORT INFORMATION
  Report Type: Report from Study
  Country: CA (occurrence: CA)
  Receive Date: 20151228
  Receipt Date: 20151228
  Transmission Date: 20160305
  Serious: Yes (Other)
  Sender: FDA-Public Use
  Company Number: PHHY2015CA168912

PATIENT
  Sex: Female

DRUGS (1)
  1. GILENYA [Suspect]
     Active Substance: FINGOLIMOD HYDROCHLORIDE
     Indication: MULTIPLE SCLEROSIS
     Route: 048
     Dates: start: 20151215, end: 20151220

REACTIONS (5)
  - Immune thrombocytopenic purpura [Unknown]
  - Platelet count decreased [Unknown]
  - Contusion [Unknown]
  - Rash generalised [Unknown]
  - Fatigue [Unknown]
